FAERS Safety Report 23355912 (Version 1)
Quarter: 2024Q1

REPORT INFORMATION
  Report Type: Spontaneous
  Country: SK (occurrence: SK)
  Receive Date: 20240102
  Receipt Date: 20240102
  Transmission Date: 20240410
  Serious: Yes (Other)
  Sender: FDA-Public Use
  Company Number: SK-FreseniusKabi-FK202313738

PATIENT
  Age: 74 Year
  Sex: Female

DRUGS (3)
  1. ZOLEDRONIC ACID [Suspect]
     Active Substance: ZOLEDRONIC ACID
     Indication: Osteoporosis postmenopausal
     Route: 065
     Dates: start: 2012, end: 2017
  2. PROLIA [Concomitant]
     Active Substance: DENOSUMAB
     Indication: Osteoporosis postmenopausal
     Route: 065
     Dates: start: 2019, end: 2023
  3. RISEDRONATE SODIUM [Concomitant]
     Active Substance: RISEDRONATE SODIUM
     Indication: Osteoporosis postmenopausal
     Route: 065
     Dates: start: 2005

REACTIONS (1)
  - Osteonecrosis of jaw [Unknown]
